FAERS Safety Report 8571004-2 (Version None)
Quarter: 2012Q3

REPORT INFORMATION
  Report Type: 
  Country: None (occurrence: None)
  Receive Date: 20120806
  Receipt Date: 20120731
  Transmission Date: 20120928
  Serious: Yes (Other)
  Sender: FDA-Public Use
  Company Number: US-009507513-1208USA000488

PATIENT

DRUGS (3)
  1. TELAPREVIR [Suspect]
     Dosage: UNK
     Dates: start: 20120201, end: 20120101
  2. PEG-INTRON [Suspect]
     Indication: HEPATITIS C
     Dosage: 120 MICROGRAM, QW
     Dates: start: 20120118
  3. RIBASPHERE [Suspect]
     Dosage: UNK
     Dates: start: 20120118

REACTIONS (3)
  - SPINAL DISORDER [None]
  - RASH [None]
  - DEPRESSION [None]
